FAERS Safety Report 5255796-6 (Version None)
Quarter: 2007Q1

REPORT INFORMATION
  Report Type: 
  Country: None (occurrence: None)
  Receive Date: 20070301
  Receipt Date: 20070213
  Transmission Date: 20070707
  Serious: Yes (Other)
  Sender: FDA-Public Use
  Company Number: 237142

PATIENT
  Sex: Male

DRUGS (5)
  1. AVASTIN [Suspect]
     Indication: COLORECTAL CANCER METASTATIC
     Dates: start: 20060415, end: 20060815
  2. FLUOROURACIL [Concomitant]
  3. LEUCOVORIN CALCIUM [Concomitant]
  4. IRINOTECAN HCL [Concomitant]
  5. AREDIA [Concomitant]

REACTIONS (3)
  - ANTI-PLATELET ANTIBODY POSITIVE [None]
  - AUTOIMMUNE THROMBOCYTOPENIA [None]
  - DISEASE PROGRESSION [None]
